FAERS Safety Report 14413385 (Version 2)
Quarter: 2018Q1

REPORT INFORMATION
  Report Type: Spontaneous
  Country: BE (occurrence: BE)
  Receive Date: 20180119
  Receipt Date: 20180302
  Transmission Date: 20180509
  Serious: Yes (Death)
  Sender: FDA-Public Use
  Company Number: BE-CHIESI USA INC.-BE-2018CHI000011

PATIENT
  Age: 3 Month

DRUGS (3)
  1. CUROSURF [Suspect]
     Active Substance: PORACTANT ALFA
     Indication: RESPIRATORY SYNCYTIAL VIRUS BRONCHIOLITIS
     Dosage: 720 MG, QD
     Route: 065
     Dates: start: 20171223, end: 20171223
  2. CUROSURF [Suspect]
     Active Substance: PORACTANT ALFA
     Indication: ACUTE LYMPHOCYTIC LEUKAEMIA
     Dosage: 1440 MG, QD
     Route: 065
     Dates: start: 20171220, end: 20171220
  3. CUROSURF [Suspect]
     Active Substance: PORACTANT ALFA
     Indication: OFF LABEL USE

REACTIONS (3)
  - Overdose [Recovered/Resolved]
  - Pneumonia respiratory syncytial viral [Fatal]
  - Off label use [Recovered/Resolved]

NARRATIVE: CASE EVENT DATE: 20171220
